FAERS Safety Report 4532046-7 (Version None)
Quarter: 2004Q4

REPORT INFORMATION
  Report Type: 
  Country: None (occurrence: None)
  Receive Date: 20041220
  Receipt Date: 20041209
  Transmission Date: 20050328
  Serious: Yes (Hospitalization)
  Sender: FDA-Public Use
  Company Number: FR-GLAXOSMITHKLINE-B0361270A

PATIENT
  Age: 82 Year
  Sex: Female

DRUGS (12)
  1. AUGMENTIN '125' [Suspect]
     Dosage: 2G PER DAY
     Route: 048
     Dates: start: 20040902, end: 20040913
  2. MELLARIL [Suspect]
     Dosage: 7UNIT PER DAY
     Route: 048
     Dates: start: 20040902, end: 20040916
  3. DIAMICRON [Concomitant]
     Indication: DIABETES MELLITUS
     Dosage: 30MG PER DAY
     Route: 048
     Dates: end: 20040916
  4. ASPIRIN [Concomitant]
     Dosage: 160MG PER DAY
     Route: 048
     Dates: end: 20040916
  5. PROZAC [Concomitant]
     Route: 048
     Dates: end: 20040916
  6. OROCAL [Concomitant]
     Route: 048
     Dates: end: 20040916
  7. OXYGEN [Concomitant]
     Route: 065
  8. INHALED BETA-2 AGONIST (UNSPECIFIED) [Concomitant]
     Route: 055
  9. IMOVANE [Concomitant]
     Route: 065
     Dates: start: 20040830
  10. RULID [Concomitant]
     Route: 065
     Dates: start: 20040830, end: 20040902
  11. RESPIRATORY PHYSIOTHERAPY [Concomitant]
  12. AUGMENTIN '125' [Concomitant]
     Indication: URINARY TRACT INFECTION
     Dosage: 3G PER DAY
     Route: 048
     Dates: start: 20030918, end: 20030922

REACTIONS (7)
  - ASCITES [None]
  - BLOOD BILIRUBIN INCREASED [None]
  - CARDIAC FAILURE [None]
  - HAEMOGLOBIN DECREASED [None]
  - HAEMOLYTIC ANAEMIA [None]
  - OCULAR ICTERUS [None]
  - OEDEMA PERIPHERAL [None]
